FAERS Safety Report 13189773 (Version 2)
Quarter: 2017Q1

REPORT INFORMATION
  Report Type: Spontaneous
  Country: US (occurrence: US)
  Receive Date: 20170206
  Receipt Date: 20170328
  Transmission Date: 20170428
  Serious: Yes (Other)
  Sender: FDA-Public Use
  Company Number: US-ELI_LILLY_AND_COMPANY-US201701010511

PATIENT
  Age: 91 Year
  Sex: Female

DRUGS (6)
  1. HIDROCORTISON [Concomitant]
     Active Substance: HYDROCORTISONE
  2. LIPITOR [Concomitant]
     Active Substance: ATORVASTATIN CALCIUM
  3. SYNTHROID [Concomitant]
     Active Substance: LEVOTHYROXINE SODIUM
  4. AMLODIPINE [Concomitant]
     Active Substance: AMLODIPINE BESYLATE
  5. HUMATROPE [Suspect]
     Active Substance: SOMATROPIN
     Indication: PITUITARY TUMOUR
     Dosage: 0.6 MG, UNK
     Route: 058
     Dates: start: 2002, end: 201701
  6. LEVODOPA [Concomitant]
     Active Substance: LEVODOPA

REACTIONS (13)
  - Seizure [Recovering/Resolving]
  - Musculoskeletal stiffness [Unknown]
  - Facial bones fracture [Unknown]
  - Nasal injury [Unknown]
  - Arthralgia [Unknown]
  - Seizure [Recovered/Resolved]
  - Haematoma [Unknown]
  - Hypotonia [Unknown]
  - Fall [Unknown]
  - Feeling cold [Not Recovered/Not Resolved]
  - Eye haemorrhage [Unknown]
  - Blood pressure increased [Unknown]
  - Confusional state [Unknown]

NARRATIVE: CASE EVENT DATE: 201612
